FAERS Safety Report 9649316 (Version 3)
Quarter: 2014Q4

REPORT INFORMATION
  Report Type: Spontaneous
  Country: US (occurrence: None)
  Receive Date: 20131018
  Receipt Date: 20141020
  Transmission Date: 20150529
  Serious: No
  Sender: FDA-Public Use
  Company Number: AEGR000105

PATIENT
  Age: 60 Year
  Sex: Female
  Weight: 81.6 kg

DRUGS (9)
  1. GLUCOPHAGE [Concomitant]
     Active Substance: METFORMIN HYDROCHLORIDE
  2. MENEST (ESTROGENS CONJUGATED) [Concomitant]
  3. METFORMIN [Concomitant]
     Active Substance: METFORMIN HYDROCHLORIDE
  4. VISTARIL (HYDROXYZINE EMBONATE) [Concomitant]
  5. ZOLOFT [Concomitant]
     Active Substance: SERTRALINE HYDROCHLORIDE
  6. PRILOSEC ONGOING [Concomitant]
  7. PLAVIX [Concomitant]
     Active Substance: CLOPIDOGREL BISULFATE
  8. TRIBENZOR (AMLODIPINE BESILATE, HYDROCHLORPTHIAZIDE, OLMESARTAN MEDOXOMIL) [Concomitant]
  9. JUXTAPID [Suspect]
     Active Substance: LOMITAPIDE MESYLATE
     Indication: TYPE IIA HYPERLIPIDAEMIA
     Route: 048
     Dates: start: 201306

REACTIONS (8)
  - Hepatic enzyme increased [None]
  - Infection [None]
  - Hypercholesterolaemia [None]
  - Constipation [None]
  - Weight decreased [None]
  - Hepatomegaly [None]
  - Oropharyngeal pain [None]
  - Lymphadenopathy [None]

NARRATIVE: CASE EVENT DATE: 2013
